FAERS Safety Report 10494450 (Version 1)
Quarter: 2014Q4

REPORT INFORMATION
  Report Type: Spontaneous
  Country: US (occurrence: None)
  Receive Date: 20141002
  Receipt Date: 20141002
  Transmission Date: 20150528
  Serious: Yes (Other)
  Sender: FDA-Public Use
  Company Number: None

PATIENT
  Age: 76 Year
  Sex: Female

DRUGS (6)
  1. TOBRADEX DROPS [Concomitant]
  2. NEVANAC [Suspect]
     Active Substance: NEPAFENAC
     Indication: CATARACT
     Dosage: 2 DROPS EACH EYE BID?BID ?OPHTHALMIC
     Route: 047
  3. ASPIRIN. [Concomitant]
     Active Substance: ASPIRIN
  4. STERIOD DROPS [Concomitant]
  5. OMEPRAZOLE. [Concomitant]
     Active Substance: OMEPRAZOLE
  6. ANTIHYPERLIPIDEMIC [Concomitant]
     Active Substance: UNSPECIFIED INGREDIENT

REACTIONS (5)
  - Gastrooesophageal reflux disease [None]
  - Nausea [None]
  - Fatigue [None]
  - Influenza like illness [None]
  - Skin odour abnormal [None]

NARRATIVE: CASE EVENT DATE: 20140616
